FAERS Safety Report 5237219-6 (Version None)
Quarter: 2007Q1

REPORT INFORMATION
  Report Type: 
  Country: None (occurrence: None)
  Receive Date: 20061208
  Receipt Date: 20050525
  Transmission Date: 20070707
  Serious: Yes (Other)
  Sender: FDA-Public Use
  Company Number: 2005UW08100

PATIENT
  Age: 57 Year
  Sex: Female
  Weight: 68.038 kg

DRUGS (8)
  1. CRESTOR [Suspect]
     Indication: BLOOD CHOLESTEROL INCREASED
     Dosage: 10 MG PO
     Route: 048
  2. INDERAL [Concomitant]
  3. PREVACID [Concomitant]
  4. ASPIRIN [Concomitant]
  5. NIACIN [Concomitant]
  6. IMODIUM [Concomitant]
  7. VITAMIN A [Concomitant]
  8. VITAMIN D [Concomitant]

REACTIONS (2)
  - MYALGIA [None]
  - PERIPHERAL COLDNESS [None]
